FAERS Safety Report 17847125 (Version 1)
Quarter: 2020Q2

REPORT INFORMATION
  Report Type: Spontaneous
  Country: FR (occurrence: FR)
  Receive Date: 20200601
  Receipt Date: 20200601
  Transmission Date: 20200714
  Serious: Yes (Hospitalization)
  Sender: FDA-Public Use
  Company Number: FR-PFIZER INC-2020212025

PATIENT
  Age: 65 Year
  Sex: Female
  Weight: 73.4 kg

DRUGS (3)
  1. LYSANXIA [Suspect]
     Active Substance: PRAZEPAM
     Indication: ANXIETY
     Dosage: 5 MG, 3X/DAY (1/2 TABLET, 3 TIMES/DAY)
     Route: 048
     Dates: start: 2019
  2. EFFEXOR LP [Suspect]
     Active Substance: VENLAFAXINE HYDROCHLORIDE
     Indication: DEPRESSION
     Dosage: 150 MG, 1X/DAY, (2 TABLETS / DAY)
     Route: 048
     Dates: start: 2019, end: 2019
  3. EFFEXOR LP [Suspect]
     Active Substance: VENLAFAXINE HYDROCHLORIDE
     Dosage: 37.5 MG, 1X/DAY (1 TABLET/ DAY)
     Route: 048
     Dates: start: 2019, end: 20200506

REACTIONS (1)
  - Hypoglycaemia [Not Recovered/Not Resolved]

NARRATIVE: CASE EVENT DATE: 20200502
